FAERS Safety Report 4875443-2 (Version None)
Quarter: 2006Q1

REPORT INFORMATION
  Report Type: 
  Country: None (occurrence: None)
  Receive Date: 20060105
  Receipt Date: 20051228
  Transmission Date: 20060701
  Serious: Yes (Other)
  Sender: FDA-Public Use
  Company Number: 2006000486

PATIENT
  Age: 69 Year
  Sex: Male
  Weight: 67.1324 kg

DRUGS (4)
  1. LYRICA [Suspect]
     Indication: BACK PAIN
     Dosage: 100 MG (50 MG, 2 IN 1 D), ORAL
     Route: 048
     Dates: start: 20051125, end: 20051126
  2. VICOPROFEN [Concomitant]
  3. PERCOCET [Concomitant]
  4. XANAX [Concomitant]

REACTIONS (4)
  - DYSPHAGIA [None]
  - PHARYNGEAL OEDEMA [None]
  - RASH [None]
  - SWELLING FACE [None]
